FAERS Safety Report 21423940 (Version 3)
Quarter: 2022Q4

REPORT INFORMATION
  Report Type: Spontaneous
  Country: US (occurrence: None)
  Receive Date: 20221007
  Receipt Date: 20221102
  Transmission Date: 20230112
  Serious: Yes (Hospitalization)
  Sender: FDA-Public Use
  Company Number: 2022A317765

PATIENT
  Age: 25386 Day
  Sex: Female
  Weight: 95.3 kg

DRUGS (6)
  1. EVUSHELD [Suspect]
     Active Substance: CILGAVIMAB\TIXAGEVIMAB
     Indication: Rheumatoid arthritis
     Dosage: 300.0MG ONCE/SINGLE ADMINISTRATION
     Route: 030
     Dates: start: 20220906
  2. EVUSHELD [Suspect]
     Active Substance: CILGAVIMAB\TIXAGEVIMAB
     Indication: Immunodeficiency
     Dosage: 300.0MG ONCE/SINGLE ADMINISTRATION
     Route: 030
     Dates: start: 20220906
  3. EVUSHELD [Suspect]
     Active Substance: CILGAVIMAB\TIXAGEVIMAB
     Indication: Rheumatoid arthritis
     Dosage: 150 MG150.0MG UNKNOWN
     Route: 030
     Dates: start: 202202
  4. EVUSHELD [Suspect]
     Active Substance: CILGAVIMAB\TIXAGEVIMAB
     Indication: Immunodeficiency
     Dosage: 150 MG150.0MG UNKNOWN
     Route: 030
     Dates: start: 202202
  5. EVUSHELD [Suspect]
     Active Substance: CILGAVIMAB\TIXAGEVIMAB
     Indication: Rheumatoid arthritis
     Dosage: 150 MG150.0MG UNKNOWN
     Route: 030
     Dates: start: 20220301
  6. EVUSHELD [Suspect]
     Active Substance: CILGAVIMAB\TIXAGEVIMAB
     Indication: Immunodeficiency
     Dosage: 150 MG150.0MG UNKNOWN
     Route: 030
     Dates: start: 20220301

REACTIONS (7)
  - Hypersensitivity [Unknown]
  - Injection site swelling [Unknown]
  - Throat irritation [Unknown]
  - COVID-19 [Unknown]
  - Injection site erythema [Unknown]
  - Injection site pruritus [Unknown]
  - Rash [Unknown]

NARRATIVE: CASE EVENT DATE: 20220906
